FAERS Safety Report 24147312 (Version 1)
Quarter: 2024Q3

REPORT INFORMATION
  Report Type: Spontaneous
  Country: IN (occurrence: IN)
  Receive Date: 20240729
  Receipt Date: 20240729
  Transmission Date: 20241017
  Serious: Yes (Death, Other)
  Sender: SANOFI AVENTIS
  Company Number: IN-SA-2024SA217019

PATIENT
  Age: 10 Year
  Sex: Male

DRUGS (9)
  1. FLUDARABINE PHOSPHATE [Suspect]
     Active Substance: FLUDARABINE PHOSPHATE
     Indication: Combined immunodeficiency
     Dosage: 40 MG/M2, QD
  2. FLUDARABINE PHOSPHATE [Suspect]
     Active Substance: FLUDARABINE PHOSPHATE
     Indication: Bone marrow conditioning regimen
  3. ANTI-THYMOCYTE GLOBULIN (RABBIT) NOS [Suspect]
     Active Substance: LAPINE T-LYMPHOCYTE IMMUNE GLOBULIN
     Indication: Bone marrow conditioning regimen
     Dosage: 1.5 MG/KG, QD
  4. ANTI-THYMOCYTE GLOBULIN (RABBIT) NOS [Suspect]
     Active Substance: LAPINE T-LYMPHOCYTE IMMUNE GLOBULIN
     Indication: Combined immunodeficiency
  5. TREOSULFAN [Suspect]
     Active Substance: TREOSULFAN
     Indication: Combined immunodeficiency
     Dosage: 14 MG/M2, QD
  6. TREOSULFAN [Suspect]
     Active Substance: TREOSULFAN
     Indication: Bone marrow conditioning regimen
  7. TACROLIMUS [Suspect]
     Active Substance: TACROLIMUS
     Indication: Prophylaxis against graft versus host disease
  8. METHOTREXATE [Suspect]
     Active Substance: METHOTREXATE
     Indication: Prophylaxis against graft versus host disease
  9. ISONIAZID [Concomitant]
     Active Substance: ISONIAZID

REACTIONS (11)
  - Cystitis haemorrhagic [Fatal]
  - BK virus infection [Fatal]
  - Epstein-Barr virus infection reactivation [Fatal]
  - Sepsis [Fatal]
  - Escherichia infection [Fatal]
  - Clostridium difficile infection [Fatal]
  - Bacterial sepsis [Fatal]
  - Adenovirus infection [Fatal]
  - Cytomegalovirus infection [Fatal]
  - Off label use [Unknown]
  - Product administered to patient of inappropriate age [Unknown]
